FAERS Safety Report 4967640-2 (Version None)
Quarter: 2006Q2

REPORT INFORMATION
  Report Type: 
  Country: None (occurrence: None)
  Receive Date: 20060407
  Receipt Date: 20060407
  Transmission Date: 20061013
  Serious: Yes (Hospitalization)
  Sender: FDA-Public Use
  Company Number: None

PATIENT
  Sex: Female
  Weight: 69 kg

DRUGS (17)
  1. ERLOTINIB 100 MG [Suspect]
     Indication: NON-SMALL CELL LUNG CANCER
     Dosage: 100 MG PO QD
     Route: 048
     Dates: start: 20050713
  2. ADVIR [Concomitant]
  3. BACTROBAN [Concomitant]
  4. EFFEXOR [Concomitant]
  5. EPIPEN [Concomitant]
  6. IBUPROFEN [Concomitant]
  7. IMODIUM [Concomitant]
  8. METROGEL-ACNE [Concomitant]
  9. OMEPRAZOLE [Concomitant]
  10. OXYCODONE [Concomitant]
  11. SELENIUM SULFIDE [Concomitant]
  12. SPIRIVA [Concomitant]
  13. TEMAZEPAM [Concomitant]
  14. ZOMETA [Concomitant]
  15. CETIRIZINE HCL [Concomitant]
  16. VENTOLIN [Concomitant]
  17. ATIVAN [Concomitant]

REACTIONS (12)
  - BACTERIAL INFECTION [None]
  - DERMATITIS ACNEIFORM [None]
  - ERYTHEMA [None]
  - INFLAMMATION [None]
  - POST PROCEDURAL COMPLICATION [None]
  - PURULENCE [None]
  - SKIN DISORDER [None]
  - SKIN LESION [None]
  - SKIN TOXICITY [None]
  - SKIN WARM [None]
  - STAPHYLOCOCCAL INFECTION [None]
  - WOUND DRAINAGE [None]
